FAERS Safety Report 10012107 (Version 1)
Quarter: 2014Q1

REPORT INFORMATION
  Report Type: Spontaneous
  Country: US (occurrence: None)
  Receive Date: 20140304
  Receipt Date: 20140304
  Transmission Date: 20141002
  Serious: Yes (Other)
  Sender: FDA-Public Use
  Company Number: RB-57063-2013

PATIENT
  Sex: Female

DRUGS (3)
  1. SUBOXONE [Suspect]
     Indication: DEPRESSION
     Dosage: (4 MG SUBLINGUAL)
     Route: 060
  2. SUBOXONE (8 MG, 8 MG) [Suspect]
     Indication: DEPRESSION
  3. NICOTINE (NONE) [Suspect]
     Indication: NICOTINE DEPENDENCE
     Dosage: RESPIRATORY
     Route: 055
     Dates: end: 20130705

REACTIONS (9)
  - Local swelling [None]
  - Headache [None]
  - Swollen tongue [None]
  - Tremor [None]
  - Palpitations [None]
  - Dyspnoea [None]
  - Chronic obstructive pulmonary disease [None]
  - Off label use [None]
  - Wrong technique in drug usage process [None]
